FAERS Safety Report 9047117 (Version 1)
Quarter: 2013Q1

REPORT INFORMATION
  Report Type: Spontaneous
  Country: US (occurrence: None)
  Receive Date: 20130130
  Receipt Date: 20130130
  Transmission Date: 20140127
  Serious: Yes (Hospitalization)
  Sender: FDA-Public Use
  Company Number: None

PATIENT
  Age: 67 Year
  Sex: Male
  Weight: 53.1 kg

DRUGS (1)
  1. METHOTREXATE [Suspect]
     Indication: ARTHRITIS
     Route: 048
     Dates: start: 20121211, end: 20130118

REACTIONS (15)
  - Odynophagia [None]
  - Mucosal inflammation [None]
  - Cough [None]
  - Rash [None]
  - Oral mucosal exfoliation [None]
  - Hypophagia [None]
  - Epistaxis [None]
  - Haemoptysis [None]
  - Infection [None]
  - Oesophagitis [None]
  - Pancytopenia [None]
  - Haemorrhage [None]
  - Herpes simplex [None]
  - Wheezing [None]
  - Immunosuppression [None]
